FAERS Safety Report 5239586-6 (Version None)
Quarter: 2007Q1

REPORT INFORMATION
  Report Type: 
  Country: None (occurrence: None)
  Receive Date: 20070216
  Receipt Date: 20070116
  Transmission Date: 20070707
  Serious: Yes (Hospitalization)
  Sender: FDA-Public Use
  Company Number: 2007PK00195

PATIENT
  Age: 35 Year
  Sex: Male

DRUGS (6)
  1. METOPROLOL TARTRATE [Suspect]
     Indication: TACHYCARDIA
     Route: 048
     Dates: start: 20061118, end: 20061119
  2. METOPROLOL TARTRATE [Suspect]
     Route: 048
     Dates: start: 20061120, end: 20061121
  3. CLOZAPINE [Suspect]
     Dates: start: 20061114
  4. OXAZEPAM [Suspect]
     Dates: start: 20061114, end: 20061119
  5. OXAZEPAM [Suspect]
     Dates: start: 20061120
  6. ABILIFY [Suspect]
     Dates: start: 20061031

REACTIONS (1)
  - SEDATION [None]
